FAERS Safety Report 22378429 (Version 1)
Quarter: 2023Q2

REPORT INFORMATION
  Report Type: Spontaneous
  Country: US (occurrence: US)
  Receive Date: 20230529
  Receipt Date: 20230529
  Transmission Date: 20230721
  Serious: No
  Sender: FDA-Public Use
  Company Number: US-PERRIGO-22US015266

PATIENT
  Age: 58 Year
  Sex: Male
  Weight: 83.9 kg

DRUGS (1)
  1. MINOXIDIL [Suspect]
     Active Substance: MINOXIDIL
     Indication: Alopecia
     Dosage: UNKNOWN, BID
     Route: 061
     Dates: start: 20220912, end: 20221114

REACTIONS (3)
  - Dandruff [Unknown]
  - Rash [Unknown]
  - Application site pruritus [Unknown]

NARRATIVE: CASE EVENT DATE: 20221101
